FAERS Safety Report 10614821 (Version 2)
Quarter: 2014Q4

REPORT INFORMATION
  Report Type: Report from Study
  Country: DE (occurrence: DE)
  Receive Date: 20141201
  Receipt Date: 20141201
  Transmission Date: 20150529
  Serious: Yes (Death, Hospitalization)
  Sender: FDA-Public Use
  Company Number: DE-ROCHE-1466037

PATIENT
  Age: 70 Year
  Sex: Female
  Weight: 95 kg

DRUGS (14)
  1. BELOC [Concomitant]
     Active Substance: METOPROLOL TARTRATE
  2. MORPHINE [Concomitant]
     Active Substance: MORPHINE
  3. PANTOZOL [Concomitant]
     Active Substance: PANTOPRAZOLE SODIUM
  4. NEPHROTRANS [Concomitant]
  5. HEPARIN [Concomitant]
     Active Substance: HEPARIN SODIUM
  6. DECORTIN [Concomitant]
     Active Substance: PREDNISONE
  7. CARBOPLATIN. [Suspect]
     Active Substance: CARBOPLATIN
     Indication: OVARIAN CANCER
     Dosage: DATE OF LAST DOSE PRIOR TO SAE 17/APR/2014
     Route: 042
     Dates: start: 20131016
  8. ATOSIL (GERMANY) [Concomitant]
  9. AMLODIPIN [Concomitant]
     Active Substance: AMLODIPINE BESYLATE
  10. NITRO (GERMANY) [Concomitant]
  11. BEVACIZUMAB [Suspect]
     Active Substance: BEVACIZUMAB
     Indication: OVARIAN CANCER
     Dosage: DATE OF LAST DOSE PRIOR TO SAE 04/SEP/2014
     Route: 042
     Dates: start: 20131016
  12. CLEXANE [Concomitant]
     Active Substance: ENOXAPARIN SODIUM
  13. LASIX [Concomitant]
     Active Substance: FUROSEMIDE
  14. PEGYLATED LIPOSOMAL DOXORUBICIN [Suspect]
     Active Substance: DOXORUBICIN
     Indication: OVARIAN CANCER
     Dosage: DATE OF LAST DOSE PRIOR TO SAE 17/APR/2014.
     Route: 042
     Dates: start: 20131016

REACTIONS (4)
  - Dyspnoea [Recovered/Resolved]
  - Vomiting [Not Recovered/Not Resolved]
  - Cardiac failure [Fatal]
  - Renal failure [Fatal]

NARRATIVE: CASE EVENT DATE: 20140923
